FAERS Safety Report 16279207 (Version 3)
Quarter: 2019Q4

REPORT INFORMATION
  Report Type: Spontaneous
  Country: US (occurrence: US)
  Receive Date: 20190506
  Receipt Date: 20191016
  Transmission Date: 20200122
  Serious: Yes (Other)
  Sender: FDA-Public Use
  Company Number: US-AMGEN-USASP2019069653

PATIENT
  Age: 66 Year
  Sex: Female

DRUGS (1)
  1. REPATHA [Suspect]
     Active Substance: EVOLOCUMAB
     Indication: BLOOD CHOLESTEROL INCREASED
     Dosage: 140 MILLIGRAM, Q2WK
     Route: 065
     Dates: start: 201901

REACTIONS (11)
  - Dizziness [Unknown]
  - Influenza like illness [Recovering/Resolving]
  - Nausea [Unknown]
  - Dehydration [Recovering/Resolving]
  - Arrhythmia [Unknown]
  - Sinus disorder [Unknown]
  - Depression [Unknown]
  - Blood creatinine increased [Unknown]
  - Headache [Unknown]
  - Coronary artery disease [Unknown]
  - Paranasal sinus hypersecretion [Unknown]

NARRATIVE: CASE EVENT DATE: 2019
